FAERS Safety Report 11171740 (Version 1)
Quarter: 2015Q2

REPORT INFORMATION
  Report Type: Spontaneous
  Country: US (occurrence: None)
  Receive Date: 20150605
  Receipt Date: 20150605
  Transmission Date: 20150821
  Serious: Yes (Hospitalization, Other)
  Sender: FDA-Public Use
  Company Number: None

PATIENT
  Age: 17 Year
  Sex: Female
  Weight: 68.04 kg

DRUGS (5)
  1. PHENERGAN [Suspect]
     Active Substance: PROMETHAZINE HYDROCHLORIDE
     Indication: NAUSEA
     Route: 048
     Dates: start: 20150527, end: 20150528
  2. ULTRAM [Suspect]
     Active Substance: TRAMADOL HYDROCHLORIDE
     Indication: PAIN
     Route: 048
     Dates: start: 20150513, end: 20150528
  3. ULTRAM [Suspect]
     Active Substance: TRAMADOL HYDROCHLORIDE
     Indication: GALLBLADDER DISORDER
     Route: 048
     Dates: start: 20150513, end: 20150528
  4. BENADRYL [Concomitant]
     Active Substance: DIPHENHYDRAMINE HYDROCHLORIDE
  5. MOTRIN [Concomitant]
     Active Substance: IBUPROFEN

REACTIONS (3)
  - Dystonia [None]
  - Muscle twitching [None]
  - Dysphemia [None]

NARRATIVE: CASE EVENT DATE: 20150528
